FAERS Safety Report 11265021 (Version 1)
Quarter: 2015Q3

REPORT INFORMATION
  Report Type: Spontaneous
  Country: ES (occurrence: ES)
  Receive Date: 20150713
  Receipt Date: 20150713
  Transmission Date: 20151125
  Serious: Yes (Other)
  Sender: FDA-Public Use
  Company Number: ES-JNJFOC-20130415682

PATIENT
  Sex: Female

DRUGS (1)
  1. ORTHO EVRA [Suspect]
     Active Substance: ETHINYL ESTRADIOL\NORELGESTROMIN
     Indication: CONTRACEPTION
     Route: 062
     Dates: start: 2013

REACTIONS (4)
  - Gestational diabetes [Recovered/Resolved]
  - Weight increased [Recovered/Resolved]
  - Exposure during pregnancy [Recovered/Resolved]
  - Pregnancy with contraceptive patch [Recovered/Resolved]

NARRATIVE: CASE EVENT DATE: 2013
